FAERS Safety Report 9110292 (Version 1)
Quarter: 2013Q1

REPORT INFORMATION
  Report Type: Spontaneous
  Country: US (occurrence: US)
  Receive Date: 20130222
  Receipt Date: 20130222
  Transmission Date: 20140127
  Serious: No
  Sender: FDA-Public Use
  Company Number: US-009507513-1302USA010070

PATIENT
  Sex: Female

DRUGS (4)
  1. CLARINEX-D-24 [Suspect]
     Indication: HYPERSENSITIVITY
     Dosage: 5/240 MG, QD
     Route: 048
     Dates: start: 2009
  2. FLOMAX (MORNIFLUMATE) [Concomitant]
  3. CELEBREX [Concomitant]
  4. BACLOFEN [Concomitant]

REACTIONS (3)
  - Bronchitis [Not Recovered/Not Resolved]
  - Drug dose omission [Unknown]
  - Sinus congestion [Not Recovered/Not Resolved]
